FAERS Safety Report 8501835-6 (Version None)
Quarter: 2012Q3

REPORT INFORMATION
  Report Type: 
  Country: None (occurrence: None)
  Receive Date: 20120711
  Receipt Date: 20120627
  Transmission Date: 20120928
  Serious: Yes (Hospitalization)
  Sender: FDA-Public Use
  Company Number: SE-JNJFOC-20120604765

PATIENT
  Sex: Male

DRUGS (4)
  1. REMICADE [Suspect]
     Dosage: THREE TIMES/POWDER OR CONCENTRATE FOR SOLUTION FOR INFUSION, 100 MG
     Route: 042
     Dates: start: 20120101
  2. REMICADE [Suspect]
     Indication: PYODERMA GANGRENOSUM
     Dosage: 3RD INFUSION
     Route: 042
     Dates: start: 20120227
  3. KAVEPENIN [Concomitant]
     Indication: PROPHYLAXIS
     Dosage: BEFORE INFLIXIMAB 4TH INFUSION
     Route: 048
     Dates: start: 20120101
  4. UNSPECIFED MEDICATIONS [Concomitant]
     Route: 065

REACTIONS (2)
  - WOUND [None]
  - PNEUMONIA [None]
